FAERS Safety Report 7684284-2 (Version None)
Quarter: 2011Q3

REPORT INFORMATION
  Report Type: 
  Country: None (occurrence: None)
  Receive Date: 20110815
  Receipt Date: 20110801
  Transmission Date: 20111222
  Serious: No
  Sender: FDA-Public Use
  Company Number: US-B.I. PHARMACEUTICALS,INC./RIDGEFIELD-2011-BP-18904BP

PATIENT
  Sex: Female

DRUGS (9)
  1. PRADAXA [Suspect]
     Indication: ATRIAL FIBRILLATION
     Dosage: 300 MG
     Route: 048
     Dates: start: 20110730
  2. LASIX [Concomitant]
     Indication: OEDEMA
     Dosage: 80 MG
     Route: 048
  3. ISOSORBIDE DINITRATE [Concomitant]
     Dosage: 80 MG
     Route: 048
  4. FOLIC ACID [Concomitant]
     Dosage: 400 MG
     Route: 048
  5. POTASSIUM [Concomitant]
     Dosage: 10 MEQ
     Route: 048
  6. ZOLOFT [Concomitant]
     Dosage: 50 MG
     Route: 048
  7. ALTACE [Concomitant]
     Dosage: 5 MG
     Route: 048
  8. BETA CAROTENE [Concomitant]
     Dosage: 2500 U
     Route: 048
  9. LIPITOR [Concomitant]
     Dosage: 10 MG
     Route: 048

REACTIONS (2)
  - COUGH [None]
  - OROPHARYNGEAL PAIN [None]
